FAERS Safety Report 4386330-0 (Version None)
Quarter: 2004Q2

REPORT INFORMATION
  Report Type: 
  Country: None (occurrence: None)
  Receive Date: 20040623
  Receipt Date: 20040610
  Transmission Date: 20050107
  Serious: Yes (Other)
  Sender: FDA-Public Use
  Company Number: 2004219050IE

PATIENT
  Age: 61 Year
  Sex: Female

DRUGS (1)
  1. BEXTRA [Suspect]
     Dosage: 20 MG, QD, ORAL
     Route: 048
     Dates: start: 20040517, end: 20040524

REACTIONS (2)
  - RASH ERYTHEMATOUS [None]
  - RASH GENERALISED [None]
